FAERS Safety Report 9684651 (Version 3)
Quarter: 2013Q4

REPORT INFORMATION
  Report Type: Spontaneous
  Country: JP (occurrence: JP)
  Receive Date: 20131112
  Receipt Date: 20131220
  Transmission Date: 20140711
  Serious: Yes (Life-Threatening)
  Sender: FDA-Public Use
  Company Number: JP-EISAI INC-E2090-02962-SPO-JP

PATIENT
  Age: 65 Year
  Sex: Male

DRUGS (22)
  1. EXCEGRAN [Suspect]
     Indication: EPILEPSY
     Route: 048
     Dates: start: 20131008, end: 20131024
  2. MOHRUS TAPE L [Concomitant]
     Indication: CHEST PAIN
     Dosage: 40 MG
     Dates: start: 20130905
  3. TENORMIN [Concomitant]
     Indication: HYPERTENSION
     Dosage: 125 MG
     Route: 048
     Dates: start: 20130905, end: 20131105
  4. LOXOPROFEN SODIUM HYDRATE [Concomitant]
     Indication: PRODUCT USED FOR UNKNOWN INDICATION
     Dosage: UNKNOWN
     Route: 048
  5. TAKEPRON [Concomitant]
     Indication: GASTROOESOPHAGEAL REFLUX DISEASE
     Dosage: 15 MG
     Route: 048
     Dates: start: 20110411, end: 20131105
  6. AZUNOL GARGLE LIQUID [Concomitant]
     Indication: PHARYNGITIS
     Dosage: UNKNOWN
     Dates: start: 20130905, end: 20131105
  7. MAGMITT [Concomitant]
     Indication: CONSTIPATION
     Dosage: 990 MG
     Route: 048
     Dates: start: 20110520, end: 20131105
  8. MAGMITT [Concomitant]
     Dosage: 990 MG
     Route: 048
     Dates: start: 20131112
  9. CLARITH [Concomitant]
     Indication: INFECTION PROPHYLAXIS
     Dosage: 200 MG
     Route: 048
     Dates: start: 20131018, end: 20131105
  10. BROTIZOLAM [Concomitant]
     Indication: INSOMNIA
     Dosage: UNKNOWN
     Route: 048
     Dates: start: 20131014, end: 20131105
  11. EPINASTINE HYDROCHLORIDE [Concomitant]
     Indication: PRURITUS
     Dosage: 20 MG
     Route: 048
     Dates: start: 20110524, end: 20131103
  12. TRANEXAMIC ACID C [Concomitant]
     Indication: HAEMOPTYSIS
     Dosage: 750 MG
     Route: 048
     Dates: start: 20130928, end: 20131010
  13. CARBAZOCHROME [Concomitant]
     Indication: HAEMOPTYSIS
     Dosage: 30 MG
     Route: 048
     Dates: start: 20130928, end: 20131108
  14. CARBAZOCHROME [Concomitant]
     Dosage: 50 MG
     Route: 041
     Dates: start: 20131107, end: 20131108
  15. TRANSAMIN [Concomitant]
     Indication: PRODUCT USED FOR UNKNOWN INDICATION
     Dosage: 250 MG
     Route: 041
     Dates: start: 20131107, end: 20131108
  16. OMEPRAZOLE [Concomitant]
     Indication: PRODUCT USED FOR UNKNOWN INDICATION
     Dosage: UNKNOWN
     Route: 041
     Dates: end: 20131109
  17. MIDAZOLAM [Concomitant]
     Indication: PRODUCT USED FOR UNKNOWN INDICATION
     Dosage: UNKNOWN
     Route: 041
     Dates: start: 20131106
  18. ZOLPIDEM TARTRATE [Concomitant]
     Indication: PRODUCT USED FOR UNKNOWN INDICATION
     Dosage: UNKNOWN
     Route: 048
     Dates: start: 20131108
  19. NEUTROGIN [Concomitant]
     Indication: PRODUCT USED FOR UNKNOWN INDICATION
     Dosage: 100 MCG
     Route: 058
     Dates: start: 20131106, end: 20131107
  20. NEUTROGIN [Concomitant]
     Dosage: 100 MCG
     Route: 041
     Dates: start: 20131108, end: 20131110
  21. RINDERON [Concomitant]
     Indication: CEREBRAL OEDEMA MANAGEMENT
     Dosage: 2 MG
     Route: 048
     Dates: start: 20130905, end: 20131105
  22. RINDERON [Concomitant]
     Dosage: 2 MG
     Route: 048
     Dates: start: 20131109

REACTIONS (3)
  - Pancytopenia [Recovered/Resolved]
  - Febrile neutropenia [Recovered/Resolved]
  - Rash [Recovered/Resolved]
